FAERS Safety Report 12206161 (Version 1)
Quarter: 2016Q1

REPORT INFORMATION
  Report Type: Spontaneous
  Country: DE (occurrence: DE)
  Receive Date: 20160324
  Receipt Date: 20160324
  Transmission Date: 20160526
  Serious: Yes (Other)
  Sender: FDA-Public Use
  Company Number: DE-JNJFOC-20160313222

PATIENT
  Sex: Female

DRUGS (2)
  1. REGAIEN FRAUEN [Suspect]
     Active Substance: MINOXIDIL
     Indication: PRODUCT USED FOR UNKNOWN INDICATION
     Dosage: STARTED 3 MONTH PRIOR TO REPORT.
     Route: 065
  2. REGAIEN FRAUEN [Suspect]
     Active Substance: MINOXIDIL
     Route: 065

REACTIONS (4)
  - Arrhythmia [Not Recovered/Not Resolved]
  - Headache [Not Recovered/Not Resolved]
  - Drug administration error [Not Recovered/Not Resolved]
  - Dizziness [Not Recovered/Not Resolved]
